FAERS Safety Report 25051524 (Version 1)
Quarter: 2025Q1

REPORT INFORMATION
  Report Type: Spontaneous
  Country: US (occurrence: None)
  Receive Date: 20250307
  Receipt Date: 20250307
  Transmission Date: 20250408
  Serious: No
  Sender: FDA-CTU
  Company Number: None

PATIENT
  Sex: Female

DRUGS (1)
  1. TIRZEPATIDE [Suspect]
     Active Substance: TIRZEPATIDE
     Indication: Weight decreased
     Route: 030
     Dates: start: 20250211, end: 20250304

REACTIONS (3)
  - Product availability issue [None]
  - Product dispensing error [None]
  - Expired product administered [None]

NARRATIVE: CASE EVENT DATE: 20250219
